FAERS Safety Report 7513402-1 (Version None)
Quarter: 2011Q2

REPORT INFORMATION
  Report Type: 
  Country: None (occurrence: None)
  Receive Date: 20110531
  Receipt Date: 20110526
  Transmission Date: 20111010
  Serious: Yes (Hospitalization)
  Sender: FDA-Public Use
  Company Number: FR-PFIZER INC-2011112907

PATIENT
  Age: 84 Year
  Sex: Female

DRUGS (17)
  1. CITALOPRAM HYDROBROMIDE [Suspect]
     Dosage: UNK
     Route: 048
     Dates: start: 20100623
  2. MEPRONIZINE [Concomitant]
     Dosage: 1 DOSAGE FORMS, UNK
     Route: 048
  3. HALDOL [Suspect]
     Dosage: 12 GTT DAILY
     Route: 048
     Dates: start: 20100201, end: 20100622
  4. ARICEPT [Suspect]
     Indication: DEMENTIA ALZHEIMER'S TYPE
     Dosage: UNK
     Route: 048
  5. ARICEPT [Suspect]
     Dosage: 5 MG, 2X/DAY
     Route: 048
     Dates: start: 20100201, end: 20100623
  6. MEMANTINE HYDROCHLORIDE [Suspect]
     Indication: DEMENTIA ALZHEIMER'S TYPE
     Dosage: UNK
     Route: 048
  7. MEMANTINE HYDROCHLORIDE [Suspect]
     Dosage: 10 MG, 2X/DAY
     Route: 048
     Dates: start: 20100201, end: 20100623
  8. VALIUM [Suspect]
     Dosage: 15MG DAILY
     Route: 048
     Dates: start: 20100201, end: 20100622
  9. ATARAX [Suspect]
     Dosage: 25 MG, 3X/DAY
     Route: 048
     Dates: start: 20100201, end: 20100623
  10. VALIUM [Suspect]
     Dosage: UNK
     Route: 048
     Dates: start: 20100623
  11. TRIMEPRAZINE TARTRATE [Concomitant]
     Indication: SLEEP DISORDER
     Dosage: 40 GTT, UNK
     Route: 048
  12. CITALOPRAM HYDROBROMIDE [Suspect]
     Dosage: 40MG DAILY
     Route: 048
     Dates: end: 20100622
  13. LEVEMIR [Concomitant]
     Indication: TYPE 1 DIABETES MELLITUS
     Dosage: UNK
     Route: 058
  14. FERROUS SULFATE TAB [Concomitant]
     Dosage: 80 MG, UNK
     Route: 048
  15. HALDOL [Suspect]
     Dosage: 9 GTT DAILY
     Route: 048
     Dates: end: 20100201
  16. HALDOL [Suspect]
     Dosage: UNK
     Route: 048
     Dates: start: 20100623
  17. LEVOTHYROXINE SODIUM [Concomitant]
     Indication: HYPOTHYROIDISM
     Dosage: 150 UG, UNK
     Route: 048

REACTIONS (7)
  - DECREASED APPETITE [None]
  - SOMNOLENCE [None]
  - CIRCADIAN RHYTHM SLEEP DISORDER [None]
  - AGITATION [None]
  - DEHYDRATION [None]
  - DISTURBANCE IN ATTENTION [None]
  - ABNORMAL BEHAVIOUR [None]
